FAERS Safety Report 12779231 (Version 1)
Quarter: 2016Q3

REPORT INFORMATION
  Report Type: Spontaneous
  Country: US (occurrence: US)
  Receive Date: 20160921
  Receipt Date: 20160921
  Transmission Date: 20161109
  Serious: Yes (Other)
  Sender: FDA-Public Use
  Company Number: None

PATIENT
  Age: 53 Year
  Sex: Female
  Weight: 62.14 kg

DRUGS (1)
  1. CIPROFLOXACIN 250MG WESTWARD [Suspect]
     Active Substance: CIPROFLOXACIN
     Indication: URINARY TRACT INFECTION
     Route: 048
     Dates: start: 20160907

REACTIONS (5)
  - Fatigue [None]
  - Myalgia [None]
  - Micturition disorder [None]
  - Gait disturbance [None]
  - Paraesthesia [None]

NARRATIVE: CASE EVENT DATE: 20160913
